FAERS Safety Report 19284297 (Version 2)
Quarter: 2021Q3

REPORT INFORMATION
  Report Type: Spontaneous
  Country: US (occurrence: US)
  Receive Date: 20210521
  Receipt Date: 20210805
  Transmission Date: 20211014
  Serious: Yes (Hospitalization, Disabling, Other)
  Sender: FDA-Public Use
  Company Number: US-ORGANON-1205USA00976

PATIENT
  Sex: Female
  Weight: 61.22 kg

DRUGS (4)
  1. FOSAMAX PLUS D [Suspect]
     Active Substance: ALENDRONATE SODIUM\CHOLECALCIFEROL
     Dosage: UNK
     Route: 048
     Dates: start: 1996, end: 201001
  2. FOSAMAX [Suspect]
     Active Substance: ALENDRONATE SODIUM
     Indication: PROPHYLAXIS
     Dosage: 70 MILLIGRAM, QW
     Route: 048
     Dates: start: 20090217, end: 20090812
  3. ALENDRONATE SODIUM. [Suspect]
     Active Substance: ALENDRONATE SODIUM
     Dosage: 70 MG, QW
     Route: 048
     Dates: start: 20080226, end: 20081006
  4. FOSAMAX [Suspect]
     Active Substance: ALENDRONATE SODIUM
     Indication: OSTEOPOROSIS
     Dosage: 10 MG, QD
     Route: 048
     Dates: start: 19960509, end: 2010

REACTIONS (26)
  - Low turnover osteopathy [Not Recovered/Not Resolved]
  - Nephrolithiasis [Recovered/Resolved]
  - Femur fracture [Not Recovered/Not Resolved]
  - Cough [Unknown]
  - Gout [Recovered/Resolved]
  - Chronic kidney disease [Not Recovered/Not Resolved]
  - Heart valve incompetence [Unknown]
  - Joint noise [Unknown]
  - Patellofemoral pain syndrome [Unknown]
  - Dyspepsia [Recovered/Resolved]
  - Cataract [Unknown]
  - Transient ischaemic attack [Recovered/Resolved]
  - Femur fracture [Not Recovered/Not Resolved]
  - Tooth disorder [Unknown]
  - Spinal disorder [Unknown]
  - Arthralgia [Unknown]
  - Arthralgia [Unknown]
  - Body height decreased [Not Recovered/Not Resolved]
  - Pain [Unknown]
  - Headache [Unknown]
  - Stress fracture [Unknown]
  - Appendicitis [Unknown]
  - Hypothyroidism [Not Recovered/Not Resolved]
  - Rib fracture [Unknown]
  - Fracture nonunion [Not Recovered/Not Resolved]
  - Bone erosion [Unknown]

NARRATIVE: CASE EVENT DATE: 19960911
